FAERS Safety Report 9379194 (Version 3)
Quarter: 2013Q4

REPORT INFORMATION
  Report Type: Spontaneous
  Country: JP (occurrence: JP)
  Receive Date: 20130702
  Receipt Date: 20131021
  Transmission Date: 20140711
  Serious: Yes (Death, Hospitalization)
  Sender: FDA-Public Use
  Company Number: JP-JNJFOC-20130619660

PATIENT
  Age: 73 Year
  Sex: Female

DRUGS (10)
  1. FINIBAX [Suspect]
     Indication: SEPTIC SHOCK
     Route: 041
     Dates: start: 20130606, end: 20130609
  2. FINIBAX [Suspect]
     Indication: SEPTIC SHOCK
     Dosage: THERAPY DURATION  LESS THAN 1 WEEK
     Route: 041
     Dates: start: 20130603, end: 20130605
  3. FINIBAX [Suspect]
     Indication: PNEUMONIA ASPIRATION
     Dosage: THERAPY DURATION  LESS THAN 1 WEEK
     Route: 041
     Dates: start: 20130603, end: 20130605
  4. FINIBAX [Suspect]
     Indication: PNEUMONIA ASPIRATION
     Route: 041
     Dates: start: 20130606, end: 20130609
  5. FAMOTIDINE [Concomitant]
     Indication: STRESS ULCER
     Route: 041
     Dates: start: 20130602, end: 20130613
  6. DORMICUM [Concomitant]
     Indication: SEDATION
     Route: 041
     Dates: start: 20130605, end: 20130613
  7. ELASPOL [Concomitant]
     Indication: ACUTE RESPIRATORY DISTRESS SYNDROME
     Route: 041
     Dates: start: 20130604, end: 20130609
  8. ELASPOL [Concomitant]
     Indication: PNEUMONIA ASPIRATION
     Route: 041
     Dates: start: 20130604, end: 20130609
  9. ROCURONIUM BROMIDE [Concomitant]
     Indication: SEDATION
     Route: 041
     Dates: start: 20130604, end: 20130605
  10. ROCURONIUM BROMIDE [Concomitant]
     Indication: SEDATION
     Route: 041
     Dates: start: 20130605, end: 20130612

REACTIONS (2)
  - Acute respiratory distress syndrome [Fatal]
  - Hepatic function abnormal [Not Recovered/Not Resolved]
